FAERS Safety Report 8373480-7 (Version None)
Quarter: 2012Q2

REPORT INFORMATION
  Report Type: 
  Country: None (occurrence: None)
  Receive Date: 20120521
  Receipt Date: 20111012
  Transmission Date: 20120825
  Serious: Yes (Hospitalization, Disabling)
  Sender: FDA-Public Use
  Company Number: US-TEVA-2011003262

PATIENT
  Sex: Male
  Weight: 79.904 kg

DRUGS (2)
  1. TREANDA [Suspect]
     Indication: CHRONIC LYMPHOCYTIC LEUKAEMIA
     Route: 042
     Dates: start: 20090831, end: 20091230
  2. ALLOPURINOL [Suspect]
     Indication: TUMOUR LYSIS SYNDROME
     Dosage: 100 MILLIGRAM;
     Dates: start: 20090831, end: 20090925

REACTIONS (4)
  - PNEUMONIA [None]
  - RASH MACULO-PAPULAR [None]
  - PYREXIA [None]
  - IMPETIGO [None]
